FAERS Safety Report 16054158 (Version 2)
Quarter: 2019Q2

REPORT INFORMATION
  Report Type: Spontaneous
  Country: US (occurrence: US)
  Receive Date: 20190308
  Receipt Date: 20190408
  Transmission Date: 20190711
  Serious: Yes (Hospitalization)
  Sender: FDA-Public Use
  Company Number: US-ACTELION-A-NJ2019-186978

PATIENT
  Age: 61 Year
  Sex: Female

DRUGS (9)
  1. FAMOTIDINE. [Concomitant]
     Active Substance: FAMOTIDINE
     Dosage: 20 MG, QD
  2. ADCIRCA [Concomitant]
     Active Substance: TADALAFIL
     Dosage: 20 MG, QD
     Dates: start: 2006
  3. TRACLEER [Suspect]
     Active Substance: BOSENTAN
     Indication: PULMONARY ARTERIAL HYPERTENSION
     Dosage: 125 MG, BID
     Route: 048
     Dates: start: 2005
  4. SYMBICORT [Concomitant]
     Active Substance: BUDESONIDE\FORMOTEROL FUMARATE DIHYDRATE
     Dosage: 80 MCG/4.5 MCG, 2 PUFFS BID
  5. ALBUTEROL. [Concomitant]
     Active Substance: ALBUTEROL
     Dosage: UNK
  6. WOMEN^S MULTI [Concomitant]
     Dosage: UNK
  7. FOLIC ACID. [Concomitant]
     Active Substance: FOLIC ACID
     Dosage: 1 MG, QD
  8. DIGOXIN. [Concomitant]
     Active Substance: DIGOXIN
     Dosage: 0.125 MG, QD
  9. LUTEIN [Concomitant]
     Active Substance: LUTEIN
     Dosage: UNK, QD

REACTIONS (11)
  - Confusional state [Recovering/Resolving]
  - Liver function test abnormal [Unknown]
  - Cough [Recovered/Resolved]
  - Pharyngitis streptococcal [Recovered/Resolved]
  - Pneumonia [Recovered/Resolved]
  - Peripheral swelling [Recovering/Resolving]
  - Oropharyngeal pain [Recovered/Resolved]
  - Ammonia increased [Recovering/Resolving]
  - Bronchitis [Recovering/Resolving]
  - Diarrhoea [Unknown]
  - Memory impairment [Unknown]

NARRATIVE: CASE EVENT DATE: 201812
